FAERS Safety Report 9630977 (Version 1)
Quarter: 2013Q4

REPORT INFORMATION
  Report Type: Spontaneous
  Country: GB (occurrence: GB)
  Receive Date: 20131018
  Receipt Date: 20131018
  Transmission Date: 20140711
  Serious: Yes (Other)
  Sender: FDA-Public Use
  Company Number: GB-PFIZER INC-2013295710

PATIENT
  Sex: Female

DRUGS (1)
  1. LYRICA [Suspect]
     Indication: NEURALGIA
     Dosage: UNK

REACTIONS (9)
  - Seronegative arthritis [Unknown]
  - Depressed level of consciousness [Recovered/Resolved]
  - Poor quality sleep [Recovering/Resolving]
  - Restless legs syndrome [Recovered/Resolved]
  - Weight increased [Unknown]
  - Local swelling [Unknown]
  - Joint swelling [Unknown]
  - Drug withdrawal syndrome [Unknown]
  - Hyperhidrosis [Unknown]
